FAERS Safety Report 23092659 (Version 1)
Quarter: 2023Q4

REPORT INFORMATION
  Report Type: Spontaneous
  Country: IT (occurrence: IT)
  Receive Date: 20231021
  Receipt Date: 20231021
  Transmission Date: 20240110
  Serious: Yes (Other)
  Sender: FDA-Public Use
  Company Number: None

PATIENT
  Age: 69 Year
  Sex: Male

DRUGS (4)
  1. FLUOROURACIL [Suspect]
     Active Substance: FLUOROURACIL
     Indication: Colon cancer metastatic
     Dosage: III CYCLE - START OF THERAPY 06/23/2023 - THERAPY EVERY 2 WEEKS
     Dates: start: 20230720, end: 20230720
  2. FLUOROURACIL [Suspect]
     Active Substance: FLUOROURACIL
     Indication: Colon cancer metastatic
     Dosage: III CYCLE - START OF THERAPY 06/23/2023 - THERAPY EVERY 2 WEEKS
     Dates: start: 20230720, end: 20230720
  3. OXALIPLATIN [Suspect]
     Active Substance: OXALIPLATIN
     Indication: Colon cancer metastatic
     Dosage: III CYCLE - START OF THERAPY 06/23/2023 - THERAPY EVERY 2 WEEKS
     Dates: start: 20230720, end: 20230720
  4. LEVOLEUCOVORIN [Concomitant]
     Active Substance: LEVOLEUCOVORIN
     Indication: Product used for unknown indication

REACTIONS (3)
  - Thrombocytopenia [Recovered/Resolved]
  - Red blood cell count decreased [Recovering/Resolving]
  - Haemoglobin decreased [Recovering/Resolving]

NARRATIVE: CASE EVENT DATE: 20230801
